FAERS Safety Report 4810769-X (Version None)
Quarter: 2005Q4

REPORT INFORMATION
  Report Type: 
  Country: None (occurrence: None)
  Receive Date: 20051024
  Receipt Date: 20051014
  Transmission Date: 20060501
  Serious: Yes (Death)
  Sender: FDA-Public Use
  Company Number: 200514158BCC

PATIENT
  Sex: Female

DRUGS (1)
  1. CAMPHO-PHENIQUE LIQUID [Suspect]
     Indication: TOOTHACHE
     Dosage: PRN, TOPICAL
     Route: 061

REACTIONS (1)
  - DEATH [None]
